FAERS Safety Report 25895041 (Version 3)
Quarter: 2025Q4

REPORT INFORMATION
  Report Type: Spontaneous
  Country: BR (occurrence: BR)
  Receive Date: 20251008
  Receipt Date: 20251115
  Transmission Date: 20260118
  Serious: Yes (Death, Other)
  Sender: AMGEN
  Company Number: BR-AMGEN-BRASP2025198279

PATIENT
  Sex: Female

DRUGS (1)
  1. EVENITY [Suspect]
     Active Substance: ROMOSOZUMAB-AQQG
     Indication: Osteoporotic fracture
     Dosage: UNK UNK, QMO (2 SYRINGES MONTHLY)
     Route: 065
     Dates: start: 202506

REACTIONS (3)
  - Death [Fatal]
  - Anaemia [Unknown]
  - Myocardial infarction [Unknown]

NARRATIVE: CASE EVENT DATE: 20250101
